FAERS Safety Report 10277743 (Version 1)
Quarter: 2014Q3

REPORT INFORMATION
  Report Type: Spontaneous
  Country: US (occurrence: US)
  Receive Date: 20140704
  Receipt Date: 20140704
  Transmission Date: 20150326
  Serious: Yes (Other)
  Sender: FDA-Public Use
  Company Number: US-AMGEN INC.-USASP2014048717

PATIENT
  Age: 88 Year
  Sex: Female

DRUGS (13)
  1. PROLIA [Suspect]
     Active Substance: DENOSUMAB
     Indication: OSTEOPOROSIS POSTMENOPAUSAL
     Route: 065
  2. ESTER C                            /00008001/ [Concomitant]
     Dosage: UNK UNK, QD
  3. OMEGA 3                            /01333901/ [Concomitant]
     Dosage: UNK UNK, QD
  4. ALPHA LIPOIC ACID [Concomitant]
     Active Substance: .ALPHA.-LIPOIC ACID
     Dosage: UNK UNK, BID
  5. METFORMIN [Concomitant]
     Active Substance: METFORMIN HYDROCHLORIDE
     Dosage: UNK UNK, BID
  6. TRIAMTERENE. [Concomitant]
     Active Substance: TRIAMTERENE
     Dosage: 1 UNK, QD
  7. GLYBURIDE. [Concomitant]
     Active Substance: GLYBURIDE
     Dosage: UNK UNK, QD
  8. MULTIVITAMIN                       /07504101/ [Concomitant]
     Active Substance: VITAMINS
  9. AMLODIPINE [Concomitant]
     Active Substance: AMLODIPINE BESYLATE
     Dosage: 1 UNK, QD
  10. VITAMIN D3 [Concomitant]
     Active Substance: CHOLECALCIFEROL
     Dosage: UNK UNK, QD
  11. NUTRIENT 950 [Concomitant]
     Dosage: UNK UNK, BID
  12. ASPIRIN. [Concomitant]
     Active Substance: ASPIRIN
     Dosage: 81 MG, QD
  13. LISINOPRIL. [Concomitant]
     Active Substance: LISINOPRIL
     Dosage: 1 UNK, QD

REACTIONS (6)
  - Weight bearing difficulty [Unknown]
  - Nerve compression [Unknown]
  - Knee arthroplasty [Unknown]
  - Chondrolysis [Unknown]
  - Walking aid user [Unknown]
  - Arthritis [Unknown]

NARRATIVE: CASE EVENT DATE: 2012
